FAERS Safety Report 6812007-5 (Version None)
Quarter: 2010Q3

REPORT INFORMATION
  Report Type: 
  Country: None (occurrence: None)
  Receive Date: 20100701
  Receipt Date: 20100625
  Transmission Date: 20110219
  Serious: Yes (Life-Threatening)
  Sender: FDA-Public Use
  Company Number: PHHY2010IT41546

PATIENT
  Sex: Male

DRUGS (1)
  1. TAREG [Suspect]
     Indication: HYPERTENSION
     Dosage: 40 MG
     Route: 048
     Dates: start: 20100204, end: 20100204

REACTIONS (1)
  - LARYNGOSPASM [None]
